FAERS Safety Report 15726797 (Version 1)
Quarter: 2018Q4

REPORT INFORMATION
  Report Type: Spontaneous
  Country: GB (occurrence: GB)
  Receive Date: 20181217
  Receipt Date: 20181217
  Transmission Date: 20190205
  Serious: Yes (Other)
  Sender: FDA-Public Use
  Company Number: GB-ACCORD-096515

PATIENT
  Age: 33 Year
  Sex: Female

DRUGS (3)
  1. CISPLATIN. [Suspect]
     Active Substance: CISPLATIN
     Indication: OVARIAN SERTOLI-LEYDIG CELL TUMOUR
     Route: 065
  2. BLEOMYCIN [Suspect]
     Active Substance: BLEOMYCIN SULFATE
     Indication: OVARIAN SERTOLI-LEYDIG CELL TUMOUR
     Route: 065
  3. ETOPOSIDE. [Suspect]
     Active Substance: ETOPOSIDE
     Indication: OVARIAN SERTOLI-LEYDIG CELL TUMOUR
     Route: 065

REACTIONS (3)
  - Pulmonary sepsis [Unknown]
  - Off label use [Unknown]
  - Anastomotic complication [Unknown]
